FAERS Safety Report 12834186 (Version 1)
Quarter: 2016Q4

REPORT INFORMATION
  Report Type: Spontaneous
  Country: GB (occurrence: GB)
  Receive Date: 20161010
  Receipt Date: 20161010
  Transmission Date: 20170207
  Serious: Yes (Death)
  Sender: FDA-Public Use
  Company Number: GB-TEVA-699752ACC

PATIENT
  Age: 32 Year
  Sex: Female
  Weight: 67 kg

DRUGS (11)
  1. PARACETAMOL [Concomitant]
     Active Substance: ACETAMINOPHEN
     Dates: start: 20160917
  2. MIRTAZAPINE. [Concomitant]
     Active Substance: MIRTAZAPINE
     Dosage: AT 17:00
     Dates: start: 20160708, end: 20160715
  3. NALOXONE HYDROCHLORIDE. [Concomitant]
     Active Substance: NALOXONE HYDROCHLORIDE
     Dosage: AS DIRECTED BY DARS TEAM
     Dates: start: 20160708, end: 20160715
  4. MEBEVERINE HYDROCHLORIDE [Concomitant]
     Active Substance: MEBEVERINE HYDROCHLORIDE
     Dates: start: 20160917
  5. LOPERAMIDE [Concomitant]
     Active Substance: LOPERAMIDE
     Dates: start: 20160917
  6. METHADONE [Concomitant]
     Active Substance: METHADONE HYDROCHLORIDE
     Dosage: VARIABLE DOSE
     Dates: start: 20160917
  7. VITAMIN B SUBSTANCES [Concomitant]
     Dates: start: 20160917
  8. THIAMINE. [Concomitant]
     Active Substance: THIAMINE
     Dates: start: 20160917
  9. PHENOXYMETHYLPENICILLIN [Suspect]
     Active Substance: PENICILLIN V
     Dates: start: 20160918
  10. CHLORDIAZEPOXIDE. [Concomitant]
     Active Substance: CHLORDIAZEPOXIDE
     Dosage: VARIABLE DOSE
     Dates: start: 20160919
  11. PROCHLORPERAZINE. [Concomitant]
     Active Substance: PROCHLORPERAZINE
     Dates: start: 20160917

REACTIONS (1)
  - Death [Fatal]
